FAERS Safety Report 17525403 (Version 1)
Quarter: 2020Q1

REPORT INFORMATION
  Report Type: Spontaneous
  Country: US (occurrence: US)
  Receive Date: 20200303
  Receipt Date: 20200303
  Transmission Date: 20200409
  Serious: Yes (Hospitalization)
  Sender: FDA-Public Use
  Company Number: None

PATIENT
  Age: 72 Year
  Sex: Male
  Weight: 79 kg

DRUGS (1)
  1. AMANTADINE (AMANTADINE HCL 100MG TAB) [Suspect]
     Active Substance: AMANTADINE HYDROCHLORIDE
     Route: 048
     Dates: start: 20191026, end: 20191127

REACTIONS (2)
  - Hallucination [None]
  - Hallucination, visual [None]

NARRATIVE: CASE EVENT DATE: 20191127
